FAERS Safety Report 20024764 (Version 1)
Quarter: 2021Q4

REPORT INFORMATION
  Report Type: Spontaneous
  Country: US (occurrence: US)
  Receive Date: 20211102
  Receipt Date: 20211102
  Transmission Date: 20220303
  Serious: No
  Sender: FDA-Public Use
  Company Number: US-drreddys-SPO/USA/21/0142770

PATIENT
  Age: 35 Year
  Sex: Female
  Weight: 88.55 kg

DRUGS (9)
  1. DIVALPROEX SODIUM [Suspect]
     Active Substance: DIVALPROEX SODIUM
     Indication: Bipolar disorder
     Dates: start: 20200916, end: 20210208
  2. DIVALPROEX SODIUM [Suspect]
     Active Substance: DIVALPROEX SODIUM
     Indication: Schizoaffective disorder
     Dosage: 1 TABLET AT BED TIME FOR 1 WEEK THEN INCREASED TO TO TWICE DAILY
  3. OMEPRAZOLE [Concomitant]
     Active Substance: OMEPRAZOLE
     Indication: Product used for unknown indication
  4. PROBIOTICS NOS [Concomitant]
     Active Substance: PROBIOTICS NOS
     Indication: Product used for unknown indication
  5. CLONAZEPAM [Concomitant]
     Active Substance: CLONAZEPAM
     Indication: Product used for unknown indication
  6. DICLOFENAC [Concomitant]
     Active Substance: DICLOFENAC
     Indication: Product used for unknown indication
  7. VENLAFAXINE [Concomitant]
     Active Substance: VENLAFAXINE HYDROCHLORIDE
     Indication: Product used for unknown indication
  8. LATUDA [Concomitant]
     Active Substance: LURASIDONE HYDROCHLORIDE
     Indication: Product used for unknown indication
  9. VITAMINS [Concomitant]
     Active Substance: VITAMINS
     Indication: Product used for unknown indication

REACTIONS (4)
  - Glucose tolerance impaired [Unknown]
  - Weight increased [Unknown]
  - Amenorrhoea [Unknown]
  - Extra dose administered [Unknown]
